FAERS Safety Report 9522458 (Version 1)
Quarter: 2013Q3

REPORT INFORMATION
  Report Type: Spontaneous
  Country: CA (occurrence: None)
  Receive Date: 20130911
  Receipt Date: 20130911
  Transmission Date: 20140515
  Serious: No
  Sender: FDA-Public Use
  Company Number: AECAN201200500

PATIENT
  Age: 80 Year
  Sex: Male

DRUGS (8)
  1. GAMUNEX (IMMUNE GLOBULIN IV (HUMAN), CAPRYLATE/CHROMATOGRAPHY PURIFIED) (10 PCT) [Suspect]
     Indication: CLOSTRIDIUM DIFFICILE COLITIS
     Route: 042
     Dates: start: 20120729, end: 20120729
  2. LEVOPHED [Concomitant]
  3. FLAGYL [Concomitant]
  4. VANCOMYCIN HYDROCHLORIDE [Concomitant]
  5. TIGECYCLINE [Concomitant]
  6. PANTOPRAZOLE [Concomitant]
  7. LANOXIN [Concomitant]
  8. COUMADIN [Concomitant]

REACTIONS (2)
  - Blood pressure increased [None]
  - Infusion related reaction [None]
